FAERS Safety Report 19195808 (Version 4)
Quarter: 2021Q3

REPORT INFORMATION
  Report Type: Report from Study
  Country: US (occurrence: US)
  Receive Date: 20210429
  Receipt Date: 20210830
  Transmission Date: 20211014
  Serious: Yes (Other)
  Sender: FDA-Public Use
  Company Number: US-KYOWAKIRIN-2021BKK006667

PATIENT

DRUGS (2)
  1. POTELIGEO [Suspect]
     Active Substance: MOGAMULIZUMAB-KPKC
     Indication: PRODUCT USED FOR UNKNOWN INDICATION
     Dosage: UNK
     Route: 065
  2. COVID?19 VACCINE [Concomitant]
     Indication: PRODUCT USED FOR UNKNOWN INDICATION
     Dosage: UNK
     Route: 065

REACTIONS (13)
  - Hyperhidrosis [Unknown]
  - Condition aggravated [Unknown]
  - Ear infection fungal [Recovered/Resolved]
  - Injury [Unknown]
  - Erythema [Unknown]
  - Skin atrophy [Unknown]
  - Nodule [Recovered/Resolved]
  - Skin plaque [Unknown]
  - Anal fungal infection [Unknown]
  - Alopecia [Unknown]
  - Skin disorder [Unknown]
  - Pruritus [Unknown]
  - Rash macular [Unknown]

NARRATIVE: CASE EVENT DATE: 2021
